FAERS Safety Report 7216427-9 (Version None)
Quarter: 2011Q1

REPORT INFORMATION
  Report Type: 
  Country: None (occurrence: None)
  Receive Date: 20110107
  Receipt Date: 20110104
  Transmission Date: 20110831
  Serious: Yes (Life-Threatening, Hospitalization)
  Sender: FDA-Public Use
  Company Number: US-US-EMD SERONO, INC.-7032444

PATIENT
  Sex: Female
  Weight: 59 kg

DRUGS (10)
  1. REBIF [Suspect]
     Route: 058
     Dates: start: 20101201
  2. TEGRETOL [Concomitant]
     Indication: TRIGEMINAL NEURALGIA
  3. SUCRULFATE [Concomitant]
  4. REBIF [Suspect]
     Indication: MULTIPLE SCLEROSIS
     Route: 058
     Dates: start: 20101001, end: 20101001
  5. MAGNESIUM OXIDE [Concomitant]
  6. LEVETIRACETAM [Concomitant]
  7. TEGRETOL-XR [Concomitant]
     Indication: TRIGEMINAL NEURALGIA
  8. KEPPRA [Concomitant]
     Indication: CONVULSION
     Dates: start: 20101001
  9. CITALOPRAM HYDROBROMIDE [Concomitant]
  10. REGLAN [Concomitant]

REACTIONS (4)
  - GASTRIC ULCER HAEMORRHAGE [None]
  - ABSCESS RUPTURE [None]
  - INTESTINAL PERFORATION [None]
  - INJECTION SITE ERYTHEMA [None]
